FAERS Safety Report 4367790-8 (Version None)
Quarter: 2004Q2

REPORT INFORMATION
  Report Type: 
  Country: None (occurrence: None)
  Receive Date: 20040601
  Receipt Date: 20040527
  Transmission Date: 20050107
  Serious: Yes (Life-Threatening)
  Sender: FDA-Public Use
  Company Number: NZ-MERCK-0405NZL00027

PATIENT
  Age: 82 Year
  Sex: Female

DRUGS (4)
  1. LEVOTHYROXINE SODIUM [Concomitant]
     Route: 048
  2. METOPROLOL [Concomitant]
     Route: 048
  3. QUINAPRIL HYDROCHLORIDE [Concomitant]
     Route: 048
  4. ZOCOR [Suspect]
     Route: 048
     Dates: start: 20031025, end: 20031102

REACTIONS (2)
  - FOOD INTERACTION [None]
  - OROPHARYNGEAL SWELLING [None]
